FAERS Safety Report 8573888-0 (Version None)
Quarter: 2012Q3

REPORT INFORMATION
  Report Type: 
  Country: None (occurrence: None)
  Receive Date: 20120806
  Receipt Date: 20120330
  Transmission Date: 20120928
  Serious: No
  Sender: FDA-Public Use
  Company Number: US-GLAXOSMITHKLINE-A0971640A

PATIENT
  Age: 79 Year
  Sex: Female

DRUGS (3)
  1. ACIPHEX [Concomitant]
  2. XANAX [Concomitant]
  3. FLUTICASONE PROPIONATE [Suspect]
     Indication: ASTHMA
     Dosage: 2PUFF PER DAY
     Route: 055
     Dates: start: 20120327

REACTIONS (2)
  - VISION BLURRED [None]
  - DIZZINESS [None]
